FAERS Safety Report 20704489 (Version 1)
Quarter: 2022Q2

REPORT INFORMATION
  Report Type: Spontaneous
  Country: US (occurrence: None)
  Receive Date: 20220412
  Receipt Date: 20220412
  Transmission Date: 20220720
  Serious: No
  Sender: FDA-Public Use
  Company Number: None

PATIENT
  Sex: Female

DRUGS (1)
  1. SODIUM CHLORIDE [Suspect]
     Active Substance: SODIUM CHLORIDE
     Indication: Pulmonary arterial hypertension
     Dosage: OTHER QUANTITY : 50 NG/KG/MIN ;?OTHER FREQUENCY : CONTINOUS;?
     Route: 042
     Dates: start: 202204

REACTIONS (1)
  - Rash [None]
